FAERS Safety Report 25312639 (Version 1)
Quarter: 2025Q2

REPORT INFORMATION
  Report Type: Spontaneous
  Country: TR (occurrence: TR)
  Receive Date: 20250514
  Receipt Date: 20250514
  Transmission Date: 20250717
  Serious: Yes (Other)
  Sender: ROCHE
  Company Number: TR-ROCHE-10000278218

PATIENT
  Age: 56 Year
  Sex: Male

DRUGS (1)
  1. ATEZOLIZUMAB [Suspect]
     Active Substance: ATEZOLIZUMAB
     Indication: Non-small cell lung cancer metastatic
     Route: 042
     Dates: start: 201901

REACTIONS (5)
  - Swelling [Unknown]
  - Dyspnoea [Unknown]
  - Drug ineffective [Unknown]
  - Lymphadenopathy mediastinal [Unknown]
  - Immune-mediated lung disease [Unknown]
